FAERS Safety Report 10960441 (Version 4)
Quarter: 2015Q2

REPORT INFORMATION
  Report Type: Spontaneous
  Country: US (occurrence: US)
  Receive Date: 20150327
  Receipt Date: 20150619
  Transmission Date: 20150821
  Serious: Yes (Other)
  Sender: FDA-Public Use
  Company Number: US-ASTRAZENECA-2014SE73787

PATIENT
  Age: 23894 Day
  Sex: Male
  Weight: 120 kg

DRUGS (29)
  1. LASIX [Concomitant]
     Active Substance: FUROSEMIDE
     Route: 065
  2. FLOMAX [Concomitant]
     Active Substance: TAMSULOSIN HYDROCHLORIDE
     Route: 065
  3. TYLENOL [Concomitant]
     Active Substance: ACETAMINOPHEN
     Route: 048
     Dates: start: 20080121
  4. LEVAQUIN/ LEVOFLOXACIN [Concomitant]
     Dates: start: 20070405
  5. GLUCOPHAGE XR [Concomitant]
     Active Substance: METFORMIN HYDROCHLORIDE
     Route: 065
  6. DILAUDID [Concomitant]
     Active Substance: HYDROMORPHONE HYDROCHLORIDE
     Dosage: 2 MG/ML EVERY 2 HOURS IF NEEDED.
     Route: 042
     Dates: start: 20100914
  7. MAXZIDE [Concomitant]
     Active Substance: HYDROCHLOROTHIAZIDE\TRIAMTERENE
     Dosage: 37.5/25 MG  DAILY
     Dates: start: 20100914
  8. LISINOPRIL. [Concomitant]
     Active Substance: LISINOPRIL
     Dates: start: 20140910
  9. BYETTA [Suspect]
     Active Substance: EXENATIDE
     Indication: PRODUCT USED FOR UNKNOWN INDICATION
     Route: 065
     Dates: start: 20090618
  10. ASPIRIN. [Concomitant]
     Active Substance: ASPIRIN
     Route: 065
  11. AMBIEN [Concomitant]
     Active Substance: ZOLPIDEM TARTRATE
     Route: 048
     Dates: start: 20080121
  12. SIMVASTATIN. [Concomitant]
     Active Substance: SIMVASTATIN
     Route: 065
     Dates: end: 20140618
  13. LIPITOR [Concomitant]
     Active Substance: ATORVASTATIN CALCIUM
     Dates: start: 20080120
  14. AVANDIA [Concomitant]
     Active Substance: ROSIGLITAZONE MALEATE
     Route: 065
     Dates: start: 20030903
  15. ACTOS [Concomitant]
     Active Substance: PIOGLITAZONE HYDROCHLORIDE
     Route: 065
     Dates: end: 20110830
  16. LOVENOX [Concomitant]
     Active Substance: ENOXAPARIN SODIUM
     Dosage: 40 MG/0.4 ML
     Route: 058
     Dates: start: 20080121
  17. CEFUROXIME AXETIL. [Concomitant]
     Active Substance: CEFUROXIME AXETIL
     Dates: start: 20081104
  18. HUMALOG [Concomitant]
     Active Substance: INSULIN LISPRO
     Route: 065
     Dates: start: 20080121
  19. OMEPRAZOLE. [Concomitant]
     Active Substance: OMEPRAZOLE
     Dates: start: 20111125
  20. NEXIUM [Concomitant]
     Active Substance: ESOMEPRAZOLE MAGNESIUM
     Dates: start: 20140528
  21. FINASTERIDE. [Concomitant]
     Active Substance: FINASTERIDE
     Dates: start: 20141104
  22. BIAXIN [Concomitant]
     Active Substance: CLARITHROMYCIN
     Dates: start: 20070605
  23. DARVOCET -N [Concomitant]
     Route: 065
     Dates: start: 20030131
  24. GLYBURIDE. [Concomitant]
     Active Substance: GLYBURIDE
     Route: 065
     Dates: end: 20110524
  25. TRIAMTERENE. [Concomitant]
     Active Substance: TRIAMTERENE
     Route: 048
  26. REGLAN [Concomitant]
     Active Substance: METOCLOPRAMIDE HYDROCHLORIDE
     Route: 065
  27. ZOFRAN [Concomitant]
     Active Substance: ONDANSETRON HYDROCHLORIDE
     Dosage: 4 MG- 2 ML EVERY 6 HOURS IF NEEDED.
     Route: 042
     Dates: start: 20100914
  28. DOXYCYCLINE HYCLATE. [Concomitant]
     Active Substance: DOXYCYCLINE HYCLATE
     Dates: start: 20121228
  29. PREDNISONE. [Concomitant]
     Active Substance: PREDNISONE
     Dates: start: 20150226

REACTIONS (7)
  - Adrenal neoplasm [Unknown]
  - Pulmonary mass [Unknown]
  - Thyroid neoplasm [Unknown]
  - Lipoma [Unknown]
  - Goitre [Unknown]
  - Pancreatic neuroendocrine tumour [Unknown]
  - Liver disorder [Unknown]

NARRATIVE: CASE EVENT DATE: 20100914
